FAERS Safety Report 18356894 (Version 1)
Quarter: 2020Q4

REPORT INFORMATION
  Report Type: Spontaneous
  Country: TR (occurrence: TR)
  Receive Date: 20201007
  Receipt Date: 20201007
  Transmission Date: 20210114
  Serious: Yes (Hospitalization, Other)
  Sender: FDA-Public Use
  Company Number: TR-GLAXOSMITHKLINE-TR2020TRK192113

PATIENT
  Age: 58 Year
  Sex: Female

DRUGS (4)
  1. PREDNISOLONE. [Suspect]
     Active Substance: PREDNISOLONE
     Indication: SYSTEMIC LUPUS ERYTHEMATOSUS
     Dosage: UNK
  2. BUPROPION. [Suspect]
     Active Substance: BUPROPION
     Indication: EX-TOBACCO USER
     Dosage: 300 MG, 1D
  3. PREDNISOLONE. [Suspect]
     Active Substance: PREDNISOLONE
     Dosage: UNK
  4. AZATHIOPRINE. [Suspect]
     Active Substance: AZATHIOPRINE
     Indication: SYSTEMIC LUPUS ERYTHEMATOSUS
     Dosage: UNK

REACTIONS (13)
  - Dry mouth [Unknown]
  - Skin lesion [Unknown]
  - Systemic lupus erythematosus [Unknown]
  - Rash [Unknown]
  - Hyperglycaemia [Unknown]
  - Red blood cell sedimentation rate increased [Unknown]
  - Vasculitis [Unknown]
  - Hyperaemia [Unknown]
  - Leukopenia [Unknown]
  - Myalgia [Unknown]
  - Tenderness [Unknown]
  - Cutaneous lupus erythematosus [Unknown]
  - Arthralgia [Unknown]
